FAERS Safety Report 9848432 (Version 1)
Quarter: 2014Q1

REPORT INFORMATION
  Report Type: Spontaneous
  Country: US (occurrence: None)
  Receive Date: 20140127
  Receipt Date: 20140127
  Transmission Date: 20141002
  Serious: Yes (Disabling, Other)
  Sender: FDA-Public Use
  Company Number: None

PATIENT
  Age: 44 Year
  Sex: Female
  Weight: 113.4 kg

DRUGS (2)
  1. DULOXETINE [Suspect]
     Indication: DEPRESSION
     Dosage: ONE PILL ONCE DAILY TAKEN BY MOUTH
     Route: 048
     Dates: start: 20131218, end: 20140125
  2. DULOXETINE [Suspect]
     Indication: FIBROMYALGIA
     Dosage: ONE PILL ONCE DAILY TAKEN BY MOUTH
     Route: 048
     Dates: start: 20131218, end: 20140125

REACTIONS (7)
  - Mood swings [None]
  - Nightmare [None]
  - Headache [None]
  - Depression [None]
  - Sleep terror [None]
  - Product substitution issue [None]
  - Influenza like illness [None]
